FAERS Safety Report 17010141 (Version 2)
Quarter: 2019Q4

REPORT INFORMATION
  Report Type: Spontaneous
  Country: US (occurrence: US)
  Receive Date: 20191108
  Receipt Date: 20191223
  Transmission Date: 20200122
  Serious: No
  Sender: FDA-Public Use
  Company Number: US-JNJFOC-20191105156

PATIENT
  Sex: Female

DRUGS (2)
  1. RAZADYNE [Suspect]
     Active Substance: GALANTAMINE HYDROBROMIDE
     Indication: DEMENTIA ALZHEIMER^S TYPE
     Route: 065
  2. EFFEXOR XR [Concomitant]
     Active Substance: VENLAFAXINE HYDROCHLORIDE
     Indication: DEPRESSION
     Route: 065

REACTIONS (5)
  - Drug ineffective [Unknown]
  - Memory impairment [Unknown]
  - Depression [Unknown]
  - Fatigue [Unknown]
  - Product dose omission [Unknown]
